FAERS Safety Report 5004094-4 (Version None)
Quarter: 2006Q2

REPORT INFORMATION
  Report Type: 
  Country: None (occurrence: None)
  Receive Date: 20060511
  Receipt Date: 20060502
  Transmission Date: 20061013
  Serious: Yes (Disabling)
  Sender: FDA-Public Use
  Company Number: 2006060011

PATIENT
  Sex: Male

DRUGS (2)
  1. XANAX [Suspect]
     Indication: DEPRESSION
  2. NORCO [Concomitant]

REACTIONS (1)
  - ERECTILE DYSFUNCTION [None]
